FAERS Safety Report 16004136 (Version 1)
Quarter: 2019Q1

REPORT INFORMATION
  Report Type: Spontaneous
  Country: US (occurrence: US)
  Receive Date: 20190129
  Receipt Date: 20190129
  Transmission Date: 20190418
  Serious: Yes (Other)
  Sender: FDA-Public Use
  Company Number: None

PATIENT
  Age: 57 Year
  Sex: Female
  Weight: 73.94 kg

DRUGS (3)
  1. OCREVUS [Suspect]
     Active Substance: OCRELIZUMAB
     Indication: MULTIPLE SCLEROSIS
     Route: 042
     Dates: start: 20170927
  2. OCREVUS [Suspect]
     Active Substance: OCRELIZUMAB
     Route: 042
     Dates: start: 20171011
  3. OCREVUS [Suspect]
     Active Substance: OCRELIZUMAB
     Dosage: ?          OTHER FREQUENCY:EVERY 6 MONTHS;?
     Route: 042
     Dates: start: 20180419

REACTIONS (1)
  - Essential thrombocythaemia [None]

NARRATIVE: CASE EVENT DATE: 20181012
